FAERS Safety Report 24653018 (Version 1)
Quarter: 2024Q4

REPORT INFORMATION
  Report Type: Spontaneous
  Country: US (occurrence: None)
  Receive Date: 20241122
  Receipt Date: 20241122
  Transmission Date: 20250114
  Serious: No
  Sender: Public
  Company Number: None

PATIENT
  Age: 40 Year
  Sex: Male
  Weight: 107 kg

DRUGS (1)
  1. OXYCODONE HYDROCHLORIDE [Suspect]
     Active Substance: OXYCODONE HYDROCHLORIDE
     Indication: Pain
     Dosage: 1.00 UNK - UNKNOWN 3 TIMES A DAY ORAL ?
     Route: 048

REACTIONS (7)
  - Pallor [None]
  - Skin discolouration [None]
  - Hyperhidrosis [None]
  - Loss of consciousness [None]
  - Incorrect dose administered [None]
  - Withdrawal syndrome [None]
  - Unresponsive to stimuli [None]

NARRATIVE: CASE EVENT DATE: 20240828
